FAERS Safety Report 5530028-X (Version None)
Quarter: 2007Q4

REPORT INFORMATION
  Report Type: 
  Country: None (occurrence: None)
  Receive Date: 20071127
  Receipt Date: 20071112
  Transmission Date: 20080405
  Serious: Yes (Other)
  Sender: FDA-Public Use
  Company Number: 2007BI015863

PATIENT
  Age: 63 Year
  Sex: Female
  Weight: 85.1 kg

DRUGS (19)
  1. NATALIZUMAB [Suspect]
     Indication: MULTIPLE SCLEROSIS
     Dosage: 300 MG; QM; IV
     Route: 042
     Dates: start: 20070217, end: 20070618
  2. NEURONTIN [Concomitant]
  3. EFFEXOR [Concomitant]
  4. TIZANIDINE HCL [Concomitant]
  5. SINGULAIR [Concomitant]
  6. LISINOPRIL [Concomitant]
  7. REGLAN [Concomitant]
  8. ADVAIR DISKUS 100/50 [Concomitant]
  9. SPIRIVA [Concomitant]
  10. FOSAMAX [Concomitant]
  11. NORVASC [Concomitant]
  12. URSODIOL [Concomitant]
  13. L-THYROXINE [Concomitant]
  14. TYLENOL [Concomitant]
  15. ADVIL LIQUI-GELS [Concomitant]
  16. NAMENDA [Concomitant]
  17. VITAMIN D [Concomitant]
  18. CALCIUM [Concomitant]
  19. MULTIVITAMIN WITH IRON [Concomitant]

REACTIONS (4)
  - ABDOMINAL RIGIDITY [None]
  - FATIGUE [None]
  - HEPATITIS CHOLESTATIC [None]
  - HEPATOTOXICITY [None]
